FAERS Safety Report 14068743 (Version 1)
Quarter: 2017Q4

REPORT INFORMATION
  Report Type: Spontaneous
  Country: US (occurrence: US)
  Receive Date: 20171010
  Receipt Date: 20171010
  Transmission Date: 20180321
  Serious: No
  Sender: FDA-Public Use
  Company Number: US-PFIZER INC-2017434746

PATIENT
  Age: 40 Year
  Sex: Female

DRUGS (4)
  1. TRAMADOL. [Suspect]
     Active Substance: TRAMADOL
     Indication: FIBROMYALGIA
     Dosage: UNK
  2. CYMBALTA [Suspect]
     Active Substance: DULOXETINE HYDROCHLORIDE
     Indication: FIBROMYALGIA
     Dosage: UNK
  3. LYRICA [Suspect]
     Active Substance: PREGABALIN
     Indication: FIBROMYALGIA
     Dosage: UNK
  4. MEFAC [Suspect]
     Active Substance: MEFENAMIC ACID
     Indication: FIBROMYALGIA
     Dosage: UNK

REACTIONS (8)
  - Hypersensitivity [Unknown]
  - Amnesia [Unknown]
  - Pain [Recovering/Resolving]
  - Somnolence [Unknown]
  - Condition aggravated [Recovering/Resolving]
  - Muscle spasms [Unknown]
  - Swollen tongue [Recovering/Resolving]
  - Feeling abnormal [Unknown]
